FAERS Safety Report 7352520-8 (Version None)
Quarter: 2011Q1

REPORT INFORMATION
  Report Type: 
  Country: None (occurrence: None)
  Receive Date: 20110225
  Receipt Date: 20101221
  Transmission Date: 20110831
  Serious: No
  Sender: FDA-Public Use
  Company Number: 320584

PATIENT
  Sex: Male

DRUGS (3)
  1. HUMALOG [Concomitant]
  2. VICTOZA [Suspect]
     Indication: PRODUCT USED FOR UNKNOWN INDICATION
     Dosage: SUBCUTANEOUS
     Route: 058
  3. LANTUS /01483501/ (INSULIN GLARGINE) [Concomitant]

REACTIONS (1)
  - HYPOGLYCAEMIA [None]
